FAERS Safety Report 8085575-6 (Version None)
Quarter: 2012Q1

REPORT INFORMATION
  Report Type: 
  Country: None (occurrence: None)
  Receive Date: 20120128
  Receipt Date: 20110428
  Transmission Date: 20120608
  Serious: Yes (Hospitalization, Other)
  Sender: FDA-Public Use
  Company Number: US-ABBOTT-11P-163-0715585-00

PATIENT
  Sex: Male
  Weight: 70.824 kg

DRUGS (8)
  1. PROBIOTIC [Concomitant]
     Indication: CROHN'S DISEASE
  2. HUMIRA [Suspect]
     Dates: end: 20110210
  3. UROQID [Concomitant]
     Indication: NEPHROLITHIASIS
  4. LOPID [Concomitant]
     Indication: BLOOD CHOLESTEROL INCREASED
  5. HUMIRA [Suspect]
     Indication: CROHN'S DISEASE
     Route: 058
     Dates: start: 20100428, end: 20100428
  6. MAGNESIUM [Concomitant]
     Indication: PRODUCT USED FOR UNKNOWN INDICATION
  7. KLONOPIN [Concomitant]
     Indication: PRODUCT USED FOR UNKNOWN INDICATION
  8. LOPRESSOR [Concomitant]
     Indication: HYPERTENSION

REACTIONS (4)
  - CELLULITIS [None]
  - CARBUNCLE [None]
  - ABSCESS NECK [None]
  - HERPES ZOSTER [None]
